FAERS Safety Report 4452634-6 (Version None)
Quarter: 2004Q3

REPORT INFORMATION
  Report Type: 
  Country: None (occurrence: None)
  Receive Date: 20040813
  Receipt Date: 20040427
  Transmission Date: 20050211
  Serious: No
  Sender: FDA-Public Use
  Company Number: S04-USA-03342-01

PATIENT
  Age: 81 Year
  Sex: Male

DRUGS (9)
  1. NAMENDA [Suspect]
     Indication: DEMENTIA ALZHEIMER'S TYPE
     Dosage: 10 MG QD PO
     Route: 048
     Dates: start: 20040422
  2. NAMENDA [Suspect]
     Indication: DEMENTIA ALZHEIMER'S TYPE
     Dosage: 5 MG QD PO
     Route: 048
     Dates: start: 20040415, end: 20040421
  3. ARICEPT [Concomitant]
  4. SINEMET [Concomitant]
  5. KLONOPIN [Concomitant]
  6. LANOXIN [Concomitant]
  7. ATENOLOL [Concomitant]
  8. ZOCOR [Concomitant]
  9. COUMADIN [Concomitant]

REACTIONS (2)
  - AGGRESSION [None]
  - CHROMATURIA [None]
